FAERS Safety Report 17219598 (Version 1)
Quarter: 2019Q4

REPORT INFORMATION
  Report Type: Report from Study
  Country: US (occurrence: US)
  Receive Date: 20191231
  Receipt Date: 20191231
  Transmission Date: 20200122
  Serious: Yes (Death)
  Sender: FDA-Public Use
  Company Number: US-PFIZER INC-2019557831

PATIENT

DRUGS (2)
  1. CARBOPLATIN. [Suspect]
     Active Substance: CARBOPLATIN
     Indication: SMALL CELL LUNG CANCER
     Dosage: UNK, CYCLIC CARBOPLATIN AUC 5 WAS ADMINISTERED ON DAY 1 (TREATMENT WAS CONTINUED FOR SIX CYCLES)
  2. ETOPOSIDE. [Suspect]
     Active Substance: ETOPOSIDE
     Indication: SMALL CELL LUNG CANCER
     Dosage: 100 MG/M2, CYCLIC (ETOPOSIDE 100 MG/M2 ON DAYS 1-3 (TREATMENT WAS CONTINUED FOR SIX CYCLES)

REACTIONS (1)
  - Sudden death [Fatal]
